FAERS Safety Report 24004787 (Version 2)
Quarter: 2024Q2

REPORT INFORMATION
  Report Type: Spontaneous
  Country: CA (occurrence: CA)
  Receive Date: 20240624
  Receipt Date: 20240625
  Transmission Date: 20240716
  Serious: Yes (Other)
  Sender: FDA-Public Use
  Company Number: CA-PFIZER INC-202400196364

PATIENT
  Age: 22 Year
  Sex: Female

DRUGS (6)
  1. ABRILADA [Suspect]
     Active Substance: ADALIMUMAB-AFZB
     Indication: Crohn^s disease
     Dosage: WEEK0:160MG, WEEK2:80MG THEN 40 MG EVERY OTHER WEEK
     Route: 058
     Dates: start: 20220916
  2. ABRILADA [Suspect]
     Active Substance: ADALIMUMAB-AFZB
     Dosage: WEEK0:160MG, WEEK2:80MG THEN 40 MG EVERY OTHER WEEK
     Route: 058
     Dates: start: 2023
  3. BUDESONIDE [Concomitant]
     Active Substance: BUDESONIDE
     Dosage: FREQUENCY: UNKNOWN
     Route: 065
     Dates: start: 20220709, end: 2022
  4. BUDESONIDE [Concomitant]
     Active Substance: BUDESONIDE
     Dosage: FOR 10 DAYS
     Route: 065
     Dates: start: 2022
  5. IRON [Concomitant]
     Active Substance: IRON
  6. VITAMIN B12 [Concomitant]
     Active Substance: CYANOCOBALAMIN

REACTIONS (9)
  - Large intestinal ulcer [Unknown]
  - Ileal stenosis [Unknown]
  - Food intolerance [Unknown]
  - Flatulence [Unknown]
  - Abdominal pain [Unknown]
  - Abdominal discomfort [Unknown]
  - Eczema [Unknown]
  - Condition aggravated [Unknown]
  - Off label use [Unknown]
